FAERS Safety Report 18511046 (Version 1)
Quarter: 2020Q4

REPORT INFORMATION
  Report Type: Spontaneous
  Country: US (occurrence: US)
  Receive Date: 20201116
  Receipt Date: 20201116
  Transmission Date: 20210114
  Serious: Yes (Death)
  Sender: FDA-Public Use
  Company Number: None

PATIENT
  Sex: Female

DRUGS (14)
  1. TRETINOIN 10MG CAP [Suspect]
     Active Substance: TRETINOIN
     Indication: ACUTE PROMYELOCYTIC LEUKAEMIA
     Dosage: 50MG(5 CAPS) BID PO
     Route: 048
     Dates: start: 20200823
  2. FLUCONAZOLE. [Concomitant]
     Active Substance: FLUCONAZOLE
  3. TRAMADOL HCL [Concomitant]
     Active Substance: TRAMADOL HYDROCHLORIDE
  4. ECONAZOLE. [Concomitant]
     Active Substance: ECONAZOLE NITRATE
  5. FLUTICASONE. [Concomitant]
     Active Substance: FLUTICASONE
  6. GABAPENTIN. [Concomitant]
     Active Substance: GABAPENTIN
  7. PANTOPRAZOLE [Concomitant]
     Active Substance: PANTOPRAZOLE
  8. CLOTRIMAZOLE. [Concomitant]
     Active Substance: CLOTRIMAZOLE
  9. HYDROCO/APAP [Concomitant]
     Active Substance: ACETAMINOPHEN\HYDROCODONE
  10. TOUJEA SOLO [Concomitant]
  11. ELIQUIS [Concomitant]
     Active Substance: APIXABAN
  12. JANUVIA [Concomitant]
     Active Substance: SITAGLIPTIN PHOSPHATE
  13. LISINOPRIL. [Concomitant]
     Active Substance: LISINOPRIL
  14. METAXALINE [Concomitant]

REACTIONS (1)
  - Death [None]
